FAERS Safety Report 8463927-X (Version None)
Quarter: 2012Q2

REPORT INFORMATION
  Report Type: 
  Country: None (occurrence: None)
  Receive Date: 20120625
  Receipt Date: 20120613
  Transmission Date: 20120825
  Serious: Yes (Other)
  Sender: FDA-Public Use
  Company Number: US-ELI_LILLY_AND_COMPANY-US201106002829

PATIENT
  Sex: Female

DRUGS (27)
  1. ACETAZOLAMIDE [Concomitant]
  2. CLONAZEPAM [Concomitant]
     Dosage: 2 DF, BID
  3. OXYCODONE HCL [Concomitant]
     Dosage: 1 DF, EVERY 4 HRS
  4. VITAMIN D [Concomitant]
     Dosage: 3000 MG, QD
  5. LUMIGAN [Concomitant]
  6. FORTEO [Suspect]
     Dosage: 20 UG, QD
  7. FORTEO [Suspect]
     Dosage: 20 UG, QD
  8. FORTEO [Suspect]
     Dosage: 20 UG, QD
  9. HYDROXYZINE HYDROCHLORIDE [Concomitant]
  10. THIAMINE [Concomitant]
     Dosage: 100 MG, QD
  11. CALCIUM [Concomitant]
     Dosage: 3000 U, QD
  12. LOVAZA [Concomitant]
     Indication: SUPPLEMENTATION THERAPY
  13. FORTEO [Suspect]
     Dosage: 20 UG, QD
  14. FLOVENT [Concomitant]
     Dosage: 2 DF, QD
  15. DIHYDROCODEINE BITARTRATE INJ [Concomitant]
  16. KLOR-CON [Concomitant]
     Dosage: 20 MEQ, QD
  17. OMEPRAZOLE [Concomitant]
     Dosage: 20 MG, QD
  18. ACETAMINOPHEN [Concomitant]
  19. LEXAPRO [Concomitant]
     Dosage: 20 MG, QD
  20. AMLODIPINE [Concomitant]
  21. FOLIC ACID [Concomitant]
     Dosage: 1 MG, QD
  22. IBUPROFEN [Concomitant]
  23. NAPROXEN [Concomitant]
     Dosage: 2 DF, BID
  24. FORTEO [Suspect]
     Indication: OSTEOPOROSIS
     Dosage: 20 UG, QD
  25. ATENOLOL [Concomitant]
     Dosage: 0.5 DF, QD
  26. LYRICA [Concomitant]
     Dosage: 2 DF, QD
  27. TRAMADOL HCL [Concomitant]
     Dosage: 2 DF, BID

REACTIONS (22)
  - INTERVERTEBRAL DISC DEGENERATION [None]
  - ERYTHEMA [None]
  - INJECTION SITE HAEMATOMA [None]
  - MUSCULAR WEAKNESS [None]
  - VISUAL IMPAIRMENT [None]
  - INJECTION SITE PRURITUS [None]
  - CEREBRAL ATROPHY [None]
  - BACK PAIN [None]
  - VITAMIN D DECREASED [None]
  - DRUG DOSE OMISSION [None]
  - NASOPHARYNGITIS [None]
  - ROAD TRAFFIC ACCIDENT [None]
  - BLOOD IRON DECREASED [None]
  - MALAISE [None]
  - EYELID DISORDER [None]
  - FALL [None]
  - INJECTION SITE PAIN [None]
  - BALANCE DISORDER [None]
  - TREMOR [None]
  - SLUGGISHNESS [None]
  - WEIGHT DECREASED [None]
  - INJECTION SITE ERYTHEMA [None]
